FAERS Safety Report 4974451-0 (Version None)
Quarter: 2006Q2

REPORT INFORMATION
  Report Type: 
  Country: None (occurrence: None)
  Receive Date: 20060417
  Receipt Date: 20060203
  Transmission Date: 20061013
  Serious: Yes (Hospitalization)
  Sender: FDA-Public Use
  Company Number: CH-ABBOTT-06P-151-0324131-00

PATIENT
  Age: 53 Year
  Sex: Female

DRUGS (8)
  1. KALETRA [Interacting]
     Indication: DRUG USE FOR UNKNOWN INDICATION
     Dosage: 2 PER DAY
     Route: 048
     Dates: start: 20030601, end: 20060104
  2. METHADONE HCL [Interacting]
     Indication: MENTAL DISORDER
     Dosage: 2 PER DAY
     Route: 048
     Dates: start: 20050601, end: 20060113
  3. METHADONE HCL [Interacting]
     Indication: ABNORMAL BEHAVIOUR
  4. PAROXETINE HYDROCHLORIDE [Suspect]
     Indication: DRUG USE FOR UNKNOWN INDICATION
     Dosage: 1.5 PER DAY
     Route: 048
     Dates: start: 20020101, end: 20060113
  5. METHYLPHENIDATE HCL [Suspect]
     Indication: DRUG USE FOR UNKNOWN INDICATION
     Dosage: 2 PER DAY
     Route: 048
     Dates: start: 20030101, end: 20060113
  6. DIDANOSINE [Concomitant]
     Indication: DRUG USE FOR UNKNOWN INDICATION
     Route: 048
     Dates: start: 20040701, end: 20060104
  7. TENOFOVIR [Concomitant]
     Indication: DRUG USE FOR UNKNOWN INDICATION
     Route: 048
     Dates: start: 20040701, end: 20060104
  8. FOSAMPRENAVIR [Concomitant]
     Indication: DRUG USE FOR UNKNOWN INDICATION
     Dosage: 2 PER DAY
     Route: 048
     Dates: start: 20040701, end: 20060120

REACTIONS (6)
  - DRUG INTERACTION [None]
  - DYSPNOEA [None]
  - ELECTROCARDIOGRAM QT PROLONGED [None]
  - HYPERLACTACIDAEMIA [None]
  - PALPITATIONS [None]
  - TORSADE DE POINTES [None]
